FAERS Safety Report 9801871 (Version 1)
Quarter: 2014Q1

REPORT INFORMATION
  Report Type: Spontaneous
  Country: GB (occurrence: GB)
  Receive Date: 20140107
  Receipt Date: 20140107
  Transmission Date: 20141002
  Serious: Yes (Other)
  Sender: FDA-Public Use
  Company Number: GB-TAKEDA-2014TUS000073

PATIENT
  Sex: 0

DRUGS (10)
  1. FEBUXOSTAT [Suspect]
     Indication: GOUTY ARTHRITIS
     Dosage: 80 MG, QD
     Route: 048
     Dates: start: 20130801
  2. AMITRIPTYLINE [Concomitant]
  3. ASPIRIN [Concomitant]
  4. ATENOLOL [Concomitant]
  5. DOXAZOSIN [Concomitant]
  6. FINASTERIDE [Concomitant]
  7. LAXIDO [Concomitant]
  8. LEVOTHYROXINE [Concomitant]
  9. LISINOPRIL [Concomitant]
  10. PRAVASTATIN [Concomitant]

REACTIONS (2)
  - Periarthritis [Unknown]
  - Arthralgia [Unknown]
